FAERS Safety Report 6552493-1 (Version None)
Quarter: 2010Q1

REPORT INFORMATION
  Report Type: 
  Country: None (occurrence: None)
  Receive Date: 20100126
  Receipt Date: 20100118
  Transmission Date: 20100710
  Serious: Yes (Hospitalization, Disabling)
  Sender: FDA-Public Use
  Company Number: FR-PFIZER INC-2009311431

PATIENT
  Sex: Female

DRUGS (13)
  1. RELPAX [Suspect]
     Indication: MIGRAINE
     Dosage: 40 MG, AS NEEDED
     Route: 048
     Dates: start: 20081211, end: 20090124
  2. DERINOX [Interacting]
     Indication: NASAL CONGESTION
     Dosage: 1 DF, 3X/DAY
     Route: 045
     Dates: start: 20090119, end: 20090124
  3. FLURBIPROFEN [Concomitant]
     Indication: PAIN
     Dosage: 100 MG 2X/DAY, 5 DAYS PER MONTH
     Route: 048
     Dates: start: 20081211, end: 20090124
  4. ESCITALOPRAM [Concomitant]
     Indication: DEPRESSION
     Dosage: 20 MG, 1X/DAY
     Route: 048
     Dates: start: 20090119, end: 20090124
  5. CEFUROXIME [Concomitant]
     Indication: BACTERIAL INFECTION
     Dosage: 250 MG, 2X/DAY
     Route: 048
     Dates: start: 20090119, end: 20090124
  6. EUPHON [Concomitant]
     Indication: COUGH
     Dosage: 15 ML, 3X/DAY
     Dates: start: 20090119, end: 20090124
  7. PARACETAMOL [Concomitant]
     Dosage: 500 MG, 3X/DAY
     Dates: start: 20081211
  8. TOPALGIC [Concomitant]
     Dosage: 100 MG, 2X/DAY
     Dates: start: 20081211
  9. SERESTA [Concomitant]
     Dosage: 50 MG, 1/2 TABLET IN THE EVENING
     Dates: start: 20081211
  10. HAVLANE [Concomitant]
     Dosage: 1 MG, 1 TABLET AT BED TIME
     Dates: start: 20081211
  11. PROPRANOLOL [Concomitant]
     Dosage: 160 MG, 1 CAPSULE IN THE MORNING
     Dates: start: 20081211
  12. SEROPRAM [Concomitant]
     Dosage: 20 MG, 2X/DAY
     Dates: start: 20081211, end: 20090119
  13. DEPAKOTE [Concomitant]
     Dosage: 250 MG, 3X/DAY

REACTIONS (4)
  - ANGIOGRAM CEREBRAL ABNORMAL [None]
  - ANGIOPATHY [None]
  - CEREBROVASCULAR ACCIDENT [None]
  - DRUG INTERACTION [None]
